FAERS Safety Report 23919339 (Version 1)
Quarter: 2024Q2

REPORT INFORMATION
  Report Type: Report from Study
  Country: TR (occurrence: TR)
  Receive Date: 20240530
  Receipt Date: 20240530
  Transmission Date: 20240715
  Serious: Yes (Death, Other)
  Sender: FDA-Public Use
  Company Number: TR-BEH-2024172985

PATIENT
  Weight: 2 kg

DRUGS (1)
  1. HUMAN IMMUNOGLOBULIN G [Suspect]
     Active Substance: HUMAN IMMUNOGLOBULIN G
     Indication: Isoimmune haemolytic disease
     Route: 042

REACTIONS (5)
  - Abdominal sepsis [Fatal]
  - Gastrointestinal necrosis [Unknown]
  - Gastrointestinal necrosis [Unknown]
  - Off label use [Unknown]
  - Intestinal perforation [Unknown]
